FAERS Safety Report 18684858 (Version 1)
Quarter: 2020Q4

REPORT INFORMATION
  Report Type: Spontaneous
  Country: DE (occurrence: DE)
  Receive Date: 20201230
  Receipt Date: 20201230
  Transmission Date: 20210114
  Serious: Yes (Congenital Anomaly, Other)
  Sender: FDA-Public Use
  Company Number: DE-TEVA-2020-DE-1862773

PATIENT
  Age: 1 Day
  Sex: Female
  Weight: 2.52 kg

DRUGS (5)
  1. ROACTEMRA [Suspect]
     Active Substance: TOCILIZUMAB
     Indication: RHEUMATOID ARTHRITIS
     Dosage: 20 [MG/D ]/ TWO INFUSIONS, ONE AT GW 2 2/7, THE NEXT AT GW 7 1/7, 20 MG
     Route: 064
     Dates: start: 20191004, end: 20191107
  2. VAXIGRIPTETRA [Concomitant]
     Active Substance: INFLUENZA VIRUS VACCINE QUADRIVALENT TYPE A+B
     Indication: IMMUNISATION
     Route: 064
     Dates: start: 20200113, end: 20200113
  3. BOOSTRIX POLIO [Concomitant]
     Active Substance: DIPHTHERIA AND TETANUS TOXOIDS AND ACELLULAR PERTUSSIS ADSORBED AND INACTIVATED POLIOVIRUS VACCINE
     Indication: IMMUNISATION
     Route: 064
     Dates: start: 20200504, end: 20200504
  4. PREDNISOLON [Suspect]
     Active Substance: PREDNISOLONE
     Indication: RHEUMATOID ARTHRITIS
     Dosage: 20 [MG / D (UP TO 5 MG / D)]
     Route: 064
     Dates: start: 20190918, end: 20200522
  5. KADEFUNGIN KOMBI [Concomitant]
     Indication: VULVOVAGINAL MYCOTIC INFECTION
     Route: 064
     Dates: start: 20200123, end: 20200129

REACTIONS (3)
  - Premature baby [Unknown]
  - Ventricular septal defect [Unknown]
  - Foetal exposure during pregnancy [Unknown]

NARRATIVE: CASE EVENT DATE: 20200522
